FAERS Safety Report 10103340 (Version 1)
Quarter: 2014Q2

REPORT INFORMATION
  Report Type: Spontaneous
  Country: ES (occurrence: ES)
  Receive Date: 20140424
  Receipt Date: 20140424
  Transmission Date: 20141212
  Serious: Yes (Life-Threatening, Hospitalization)
  Sender: FDA-Public Use
  Company Number: ES-PFIZER INC-2014111903

PATIENT
  Age: 79 Year
  Sex: Female

DRUGS (7)
  1. ALDACTONE [Suspect]
     Indication: CARDIAC FAILURE CONGESTIVE
     Dosage: 100 MG, 1X/DAY
     Route: 048
     Dates: start: 20140204, end: 20140209
  2. ENALAPRIL MALEATE [Interacting]
     Indication: HYPERTENSION
     Dosage: 10 MG, 2X/DAY
     Route: 048
     Dates: start: 2010, end: 20140209
  3. EFFICIB [Interacting]
     Indication: DIABETES MELLITUS
     Dosage: 1 DF, 2X/DAY
     Route: 048
     Dates: start: 20140128, end: 20140209
  4. EMCONCOR [Interacting]
     Indication: CARDIAC FAILURE CONGESTIVE
     Dosage: 5 MG, 1X/DAY
     Route: 048
     Dates: start: 20140128, end: 20140209
  5. DIGOXINE [Concomitant]
     Indication: ATRIAL FIBRILLATION
     Dosage: 0.25 MG, 1X/DAY
     Route: 048
     Dates: start: 20130730, end: 20140209
  6. SINTROM [Concomitant]
     Indication: CARDIAC VALVE PROSTHESIS USER
     Dosage: UNK
     Route: 048
     Dates: start: 1995, end: 20140209
  7. TERPOSEN [Concomitant]
     Dosage: 150 MG, 1X/DAY
     Route: 048
     Dates: start: 20140128, end: 20140209

REACTIONS (6)
  - Renal failure [Recovering/Resolving]
  - Cardiogenic shock [Recovered/Resolved]
  - Lactic acidosis [Recovered/Resolved]
  - Ischaemic hepatitis [Recovering/Resolving]
  - Hyperkalaemia [Recovered/Resolved]
  - Drug interaction [Unknown]
